FAERS Safety Report 5895515-3 (Version None)
Quarter: 2008Q3

REPORT INFORMATION
  Report Type: 
  Country: None (occurrence: None)
  Receive Date: 20080924
  Receipt Date: 20080917
  Transmission Date: 20090109
  Serious: Yes (Death, Other)
  Sender: FDA-Public Use
  Company Number: FR-MERCK-0809FRA00060

PATIENT
  Age: 69 Year
  Sex: Female

DRUGS (14)
  1. PRIMAXIN [Suspect]
     Route: 042
     Dates: start: 20080803, end: 20080813
  2. PRIMAXIN [Suspect]
     Route: 042
     Dates: start: 20080815
  3. TACROLIMUS [Suspect]
     Indication: PROPHYLAXIS AGAINST TRANSPLANT REJECTION
     Route: 065
     Dates: start: 20080812, end: 20080813
  4. TACROLIMUS [Suspect]
     Route: 065
     Dates: start: 20080815
  5. TACROLIMUS [Suspect]
     Route: 065
     Dates: end: 20080811
  6. CANCIDAS [Concomitant]
     Route: 065
  7. PANTOPRAZOLE [Concomitant]
     Route: 065
  8. MYCOPHENOLATE MOFETIL [Concomitant]
     Route: 065
  9. METHYLPREDNISOLONE [Concomitant]
     Route: 065
  10. METRONIDAZOLE [Concomitant]
     Route: 065
  11. VANCOMYCIN [Concomitant]
     Route: 042
  12. HEPARIN [Concomitant]
     Route: 065
  13. FENTANYL [Concomitant]
     Route: 065
  14. MIDAZOLAM [Concomitant]
     Route: 065

REACTIONS (3)
  - BLOOD PRESSURE FLUCTUATION [None]
  - CONVULSION [None]
  - RESPIRATORY DISTRESS [None]
